FAERS Safety Report 4424299-0 (Version None)
Quarter: 2004Q3

REPORT INFORMATION
  Report Type: 
  Country: None (occurrence: None)
  Receive Date: 20040809
  Receipt Date: 20420723
  Transmission Date: 20050211
  Serious: Yes (Other)
  Sender: FDA-Public Use
  Company Number: 200651

PATIENT
  Age: 45 Year
  Sex: Female

DRUGS (10)
  1. AVONEX [Suspect]
     Indication: MULTIPLE SCLEROSIS
     Dosage: 30 MCG QW IM
     Route: 030
     Dates: start: 20011210, end: 20031001
  2. AVONEX [Suspect]
     Indication: MULTIPLE SCLEROSIS
     Dosage: 30 MCG QW IM
     Route: 030
     Dates: start: 20031001
  3. BACLOFEN [Concomitant]
  4. ZYRTEC [Concomitant]
  5. AMANTADINE HCL [Concomitant]
  6. TRIAMTERENE [Concomitant]
  7. DOCUSATE [Concomitant]
  8. PAXIL [Concomitant]
  9. HYDRAMINE [Concomitant]
  10. ^RON-ACID^ SUSPENSION [Concomitant]

REACTIONS (1)
  - PALATAL DYSPLASIA [None]
